FAERS Safety Report 5212082-8 (Version None)
Quarter: 2007Q1

REPORT INFORMATION
  Report Type: 
  Country: None (occurrence: None)
  Receive Date: 20070118
  Receipt Date: 20070109
  Transmission Date: 20070707
  Serious: Yes (Disabling)
  Sender: FDA-Public Use
  Company Number: 2007CG00051

PATIENT
  Age: 72 Year
  Sex: Male
  Weight: 72 kg

DRUGS (5)
  1. CRESTOR [Suspect]
     Route: 048
     Dates: start: 20060718, end: 20060725
  2. ALLOPURINOL SODIUM [Concomitant]
  3. IDEOS [Concomitant]
  4. PERINDOPRIL ERBUMINE [Concomitant]
  5. ASPIRIN [Concomitant]

REACTIONS (1)
  - OSTEOARTHRITIS [None]
